FAERS Safety Report 25264253 (Version 2)
Quarter: 2025Q3

REPORT INFORMATION
  Report Type: Spontaneous
  Country: EU (occurrence: EU)
  Receive Date: 20250502
  Receipt Date: 20250803
  Transmission Date: 20251021
  Serious: Yes (Hospitalization, Disabling)
  Sender: ALEXION PHARMACEUTICALS
  Company Number: EU-AstraZeneca-CH-00857606A

PATIENT
  Age: 86 Year
  Sex: Male
  Weight: 76 kg

DRUGS (2)
  1. CALQUENCE [Suspect]
     Active Substance: ACALABRUTINIB
     Indication: Chronic lymphocytic leukaemia
     Dosage: 200 MILLIGRAM, QD
     Dates: start: 20240416, end: 20250318
  2. CALQUENCE [Suspect]
     Active Substance: ACALABRUTINIB

REACTIONS (2)
  - Abdominal wall haematoma [Recovered/Resolved]
  - Cellulitis [Recovered/Resolved]

NARRATIVE: CASE EVENT DATE: 20250301
